FAERS Safety Report 25655769 (Version 1)
Quarter: 2025Q3

REPORT INFORMATION
  Report Type: Spontaneous
  Country: US (occurrence: US)
  Receive Date: 20250807
  Receipt Date: 20250807
  Transmission Date: 20251021
  Serious: Yes (Other)
  Sender: DR REDDYS
  Company Number: None

PATIENT
  Age: 92 Year
  Sex: Male

DRUGS (10)
  1. GEMCITABINE [Suspect]
     Active Substance: GEMCITABINE
     Indication: Non-small cell lung cancer metastatic
     Dates: start: 201512, end: 201512
  2. GEMCITABINE [Suspect]
     Active Substance: GEMCITABINE
     Indication: Non-small cell lung cancer stage IV
  3. GEMCITABINE [Suspect]
     Active Substance: GEMCITABINE
     Indication: Metastases to liver
  4. GEMCITABINE [Suspect]
     Active Substance: GEMCITABINE
     Indication: Adenocarcinoma
  5. GEMCITABINE [Suspect]
     Active Substance: GEMCITABINE
     Indication: Bone lesion
  6. PACLITAXEL [Concomitant]
     Active Substance: PACLITAXEL
     Indication: Non-small cell lung cancer metastatic
     Dosage: SECOND AND THIRD-LINE THERAPIES
     Dates: start: 201512, end: 201603
  7. PACLITAXEL [Concomitant]
     Active Substance: PACLITAXEL
     Indication: Non-small cell lung cancer stage IV
  8. PACLITAXEL [Concomitant]
     Active Substance: PACLITAXEL
     Indication: Metastases to liver
  9. PACLITAXEL [Concomitant]
     Active Substance: PACLITAXEL
     Indication: Bone lesion
  10. PACLITAXEL [Concomitant]
     Active Substance: PACLITAXEL
     Indication: Bone lesion

REACTIONS (1)
  - Myelosuppression [Unknown]

NARRATIVE: CASE EVENT DATE: 20151201
